FAERS Safety Report 20434013 (Version 1)
Quarter: 2022Q1

REPORT INFORMATION
  Report Type: Spontaneous
  Country: FR (occurrence: FR)
  Receive Date: 20220205
  Receipt Date: 20220205
  Transmission Date: 20220423
  Serious: Yes (Hospitalization, Other)
  Sender: FDA-Public Use
  Company Number: FR-NOVARTISPH-NVSC2022FR021627

PATIENT
  Age: 54 Year
  Sex: Male

DRUGS (5)
  1. MYFORTIC [Suspect]
     Active Substance: MYCOPHENOLATE SODIUM
     Indication: Prophylaxis against transplant rejection
     Dosage: 1440 MG, QD
     Route: 065
     Dates: start: 20210315, end: 20210322
  2. ENVARSUS XR [Suspect]
     Active Substance: TACROLIMUS
     Indication: Prophylaxis against transplant rejection
     Dosage: 5 MG, QD (STRENGTH 4 MG, EXTENDED RELEASE TABLET )
     Route: 048
     Dates: start: 20210325
  3. PREDNISONE [Suspect]
     Active Substance: PREDNISONE
     Indication: Prophylaxis against transplant rejection
     Dosage: 40 MG, QD
     Route: 065
     Dates: start: 20210322, end: 20210324
  4. PREDNISONE [Suspect]
     Active Substance: PREDNISONE
     Dosage: 10 MG
     Route: 065
     Dates: start: 20210412
  5. HEPARIN [Concomitant]
     Active Substance: HEPARIN SODIUM
     Indication: Product used for unknown indication
     Dosage: UNK
     Route: 065

REACTIONS (3)
  - Peripancreatic fluid collection [Recovered/Resolved]
  - Escherichia bacteraemia [Recovered/Resolved]
  - Fungaemia [Recovered/Resolved]

NARRATIVE: CASE EVENT DATE: 20210404
